FAERS Safety Report 21799000 (Version 3)
Quarter: 2025Q2

REPORT INFORMATION
  Report Type: Spontaneous
  Country: PT (occurrence: PT)
  Receive Date: 20221230
  Receipt Date: 20250624
  Transmission Date: 20250716
  Serious: Yes (Hospitalization, Other)
  Sender: AUROBINDO
  Company Number: PT-BALDACCIPT-2022058

PATIENT
  Age: 51 Year
  Sex: Female

DRUGS (4)
  1. CIPROFLOXACIN [Suspect]
     Active Substance: CIPROFLOXACIN
     Indication: Colitis ischaemic
     Route: 065
  2. METRONIDAZOLE [Concomitant]
     Active Substance: METRONIDAZOLE
     Indication: Colitis ischaemic
     Route: 065
  3. MESALAMINE [Concomitant]
     Active Substance: MESALAMINE
     Indication: Colitis ischaemic
     Dosage: 3 GRAM, ONCE A DAY
     Route: 048
  4. MESALAMINE [Concomitant]
     Active Substance: MESALAMINE
     Dosage: 4 GRAM, ONCE A DAY (4 GRAMS, ORAL AND AS ENEMA)
     Route: 048

REACTIONS (3)
  - Colitis ulcerative [Recovered/Resolved]
  - Clostridium test positive [Recovered/Resolved]
  - Clostridium difficile colitis [Recovered/Resolved]
